FAERS Safety Report 22596531 (Version 1)
Quarter: 2023Q2

REPORT INFORMATION
  Report Type: Other
  Country: ES (occurrence: ES)
  Receive Date: 20230613
  Receipt Date: 20230613
  Transmission Date: 20230721
  Serious: Yes (Life-Threatening, Other)
  Sender: FDA-Public Use
  Company Number: ES-AEMPS-1377785

PATIENT
  Age: 38 Year
  Sex: Male

DRUGS (6)
  1. TACROLIMUS [Interacting]
     Active Substance: TACROLIMUS
     Indication: Immunosuppression
     Dosage: UNK
     Route: 048
     Dates: start: 20230315, end: 20230420
  2. ISAVUCONAZOLE [Interacting]
     Active Substance: ISAVUCONAZOLE
     Indication: Fungal infection
     Dosage: 200 MILLIGRAM, QD
     Route: 042
     Dates: start: 20230420, end: 20230422
  3. ACYCLOVIR [Interacting]
     Active Substance: ACYCLOVIR
     Indication: Herpes virus infection
     Dosage: 375 MILLIGRAM, BID
     Route: 042
     Dates: start: 20230419, end: 20230423
  4. AZITHROMYCIN [Interacting]
     Active Substance: AZITHROMYCIN
     Indication: Bacterial infection
     Dosage: 500 MILLIGRAM, QD
     Route: 048
     Dates: start: 20230418, end: 20230423
  5. OMEPRAZOLE [Interacting]
     Active Substance: OMEPRAZOLE
     Indication: Prophylaxis
     Dosage: 20 MILLIGRAM, QD
     Route: 048
     Dates: start: 20230422, end: 20230424
  6. LEVOFLOXACIN [Concomitant]
     Active Substance: LEVOFLOXACIN
     Indication: Bacterial infection
     Dosage: 50 MILLIGRAM, QD
     Route: 042
     Dates: start: 20230421, end: 20230425

REACTIONS (3)
  - Myoclonic dystonia [Recovered/Resolved]
  - Chronic kidney disease [Recovered/Resolved]
  - Encephalopathy [Recovered/Resolved]

NARRATIVE: CASE EVENT DATE: 20230423
